FAERS Safety Report 16664322 (Version 3)
Quarter: 2019Q3

REPORT INFORMATION
  Report Type: Spontaneous
  Country: US (occurrence: JP)
  Receive Date: 20190802
  Receipt Date: 20190924
  Transmission Date: 20191004
  Serious: No
  Sender: FDA-Public Use
  Company Number: US-SUNOVION-2019SUN003144

PATIENT
  Age: 91 Year
  Sex: Male

DRUGS (1)
  1. INDACATEROL AND GLYCOPYRROLATE [Suspect]
     Active Substance: GLYCOPYRROLATE\INDACATEROL MALEATE
     Indication: EMPHYSEMA
     Dosage: UNK
     Route: 048
     Dates: start: 20190706, end: 20190718

REACTIONS (2)
  - Cognitive disorder [Unknown]
  - Incorrect route of product administration [Unknown]
